FAERS Safety Report 19946358 (Version 2)
Quarter: 2021Q4

REPORT INFORMATION
  Report Type: Spontaneous
  Country: DE (occurrence: DE)
  Receive Date: 20211012
  Receipt Date: 20211104
  Transmission Date: 20220303
  Serious: Yes (Hospitalization)
  Sender: FDA-Public Use
  Company Number: DE-ADRED-06440-01

PATIENT
  Age: 72 Year
  Sex: Female
  Weight: 75 kg

DRUGS (6)
  1. IBUPROFEN [Suspect]
     Active Substance: IBUPROFEN
     Indication: Product used for unknown indication
     Dosage: 600 MILLIGRAM, 600 MG, MAX 3 PRO TAG, TABLETS
     Route: 048
  2. INSULIN HUMAN [Concomitant]
     Active Substance: INSULIN HUMAN
     Dosage: UNK, NACH BZ, INJEKTIONS-/INFUSIONSL?SUNG
     Route: 058
  3. CAPTOPRIL\HYDROCHLOROTHIAZIDE [Concomitant]
     Active Substance: CAPTOPRIL\HYDROCHLOROTHIAZIDE
     Dosage: 50 MILLIGRAM, QD, 50 MG, 1-0-0-0, TABLETS
     Route: 048
  4. METFORMIN [Concomitant]
     Active Substance: METFORMIN HYDROCHLORIDE
     Dosage: 1000 MILLIGRAM, BID, 1000 MG, 1-0-1-0, TABLETS
     Route: 048
  5. PREGABALIN [Concomitant]
     Active Substance: PREGABALIN
     Dosage: 50 MILLIGRAM, QD, 50 MG, 1-0-0-0, KAPSELN
     Route: 048
  6. METAMIZOL                          /06276701/ [Concomitant]
     Dosage: 500 MILLIGRAM, 500 MG, UP TO FOUR TIMES 40 DROPS, TABLETS.
     Route: 048

REACTIONS (3)
  - Musculoskeletal pain [Recovering/Resolving]
  - Peripheral coldness [Recovering/Resolving]
  - Product prescribing error [Unknown]
